FAERS Safety Report 11419491 (Version 1)
Quarter: 2015Q3

REPORT INFORMATION
  Report Type: Spontaneous
  Country: US (occurrence: None)
  Receive Date: 20150825
  Receipt Date: 20150825
  Transmission Date: 20151125
  Serious: Yes (Other)
  Sender: FDA-Public Use
  Company Number: None

PATIENT
  Age: 5 Year
  Sex: Male
  Weight: 26.76 kg

DRUGS (1)
  1. GUANFACINE HCL [Suspect]
     Active Substance: GUANFACINE HYDROCHLORIDE
     Indication: ATTENTION DEFICIT/HYPERACTIVITY DISORDER
     Dosage: 1 MG; TAKEN BY MOUTH
     Dates: start: 20141215, end: 20150803

REACTIONS (2)
  - Aggression [None]
  - Irritability [None]

NARRATIVE: CASE EVENT DATE: 20150803
